FAERS Safety Report 5199067-5 (Version None)
Quarter: 2006Q4

REPORT INFORMATION
  Report Type: 
  Country: None (occurrence: None)
  Receive Date: 20060919
  Receipt Date: 20051128
  Transmission Date: 20070319
  Serious: Yes (Other)
  Sender: FDA-Public Use
  Company Number: HQWYE798701DEC05

PATIENT
  Age: 51 Year
  Sex: Male
  Weight: 83.99 kg

DRUGS (1)
  1. ADVIL [Suspect]
     Indication: HEADACHE
     Dosage: 2 CAPSULES, 1 TIME, ORAL
     Route: 048
     Dates: start: 20051126, end: 20051126

REACTIONS (5)
  - ERYTHEMA [None]
  - HYPERSENSITIVITY [None]
  - OEDEMA PERIPHERAL [None]
  - PRURITUS [None]
  - SNEEZING [None]
